APPROVED DRUG PRODUCT: TAVIST ALLERGY/SINUS/HEADACHE
Active Ingredient: ACETAMINOPHEN; CLEMASTINE FUMARATE; PSEUDOEPHEDRINE HYDROCHLORIDE
Strength: 500MG;EQ 0.25MG BASE;30MG
Dosage Form/Route: TABLET;ORAL
Application: N021082 | Product #001
Applicant: NOVARTIS CONSUMER HEALTH INC
Approved: Mar 1, 2001 | RLD: No | RS: No | Type: DISCN